FAERS Safety Report 9314987 (Version 1)
Quarter: 2013Q2

REPORT INFORMATION
  Report Type: Spontaneous
  Country: US (occurrence: US)
  Receive Date: 20130529
  Receipt Date: 20130529
  Transmission Date: 20140414
  Serious: Yes (Death)
  Sender: FDA-Public Use
  Company Number: US-GLAXOSMITHKLINE-A1024927A

PATIENT
  Age: 43 Year
  Sex: Female

DRUGS (2)
  1. VOTRIENT [Suspect]
     Indication: MALIGNANT URINARY TRACT NEOPLASM
     Dosage: 200MG PER DAY
     Route: 048
     Dates: start: 20130325, end: 20130501
  2. METHADONE [Concomitant]

REACTIONS (1)
  - Death [Fatal]
